FAERS Safety Report 9677011 (Version 1)
Quarter: 2013Q4

REPORT INFORMATION
  Report Type: Spontaneous
  Country: US (occurrence: US)
  Receive Date: 20131108
  Receipt Date: 20131108
  Transmission Date: 20140711
  Serious: Yes (Hospitalization)
  Sender: FDA-Public Use
  Company Number: US-BIOGENIDEC-2013BI105367

PATIENT
  Age: 68 Year
  Sex: Female

DRUGS (10)
  1. AVONEX [Suspect]
     Indication: MULTIPLE SCLEROSIS
     Route: 030
     Dates: start: 20120822
  2. BUPROPION HCL (SR) [Concomitant]
  3. CALCIUM+D+K [Concomitant]
  4. CENTRUM [Concomitant]
  5. CYMBALTA [Concomitant]
  6. IRON [Concomitant]
  7. PRAVASTATIN SODIUM [Concomitant]
  8. OSCAL 500/200 D3 [Concomitant]
  9. VITAMIN D3 SUPER STRENGTH [Concomitant]
  10. WELLBUTRIN [Concomitant]

REACTIONS (4)
  - Rib fracture [Unknown]
  - Traumatic liver injury [Unknown]
  - Pancreatic injury [Unknown]
  - Fall [Recovered/Resolved]
